FAERS Safety Report 9458226 (Version 1)
Quarter: 2013Q3

REPORT INFORMATION
  Report Type: Spontaneous
  Country: US (occurrence: None)
  Receive Date: 20130812
  Receipt Date: 20130812
  Transmission Date: 20140515
  Serious: Yes (Hospitalization)
  Sender: FDA-Public Use
  Company Number: US-008011

PATIENT
  Age: 81 Year
  Sex: Male
  Weight: 75.1 kg

DRUGS (2)
  1. CHLORAMBUCIL (CHLORAMBUCIL) (UNKNOWN) [Suspect]
     Indication: CHRONIC LYMPHOCYTIC LEUKAEMIA
     Dosage: (10 MG/M2, 7 IN 28 DAYS)
     Route: 048
     Dates: start: 20091222
  2. NORMAL SALINE (SODIUM CHLORIDE) [Concomitant]

REACTIONS (5)
  - Pyrexia [None]
  - Hypoxia [None]
  - Lymphadenopathy [None]
  - Toxicity to various agents [None]
  - Interstitial lung disease [None]
